FAERS Safety Report 6853455-7 (Version None)
Quarter: 2010Q3

REPORT INFORMATION
  Report Type: 
  Country: None (occurrence: None)
  Receive Date: 20100717
  Receipt Date: 20071206
  Transmission Date: 20110219
  Serious: No
  Sender: FDA-Public Use
  Company Number: US-PFIZER INC-2007104575

PATIENT
  Sex: Female
  Weight: 138.3 kg

DRUGS (5)
  1. CHANTIX [Suspect]
     Indication: SMOKING CESSATION THERAPY
     Dates: start: 20071101
  2. LEVOXYL [Concomitant]
  3. HYDROCHLOROTHIAZIDE [Concomitant]
  4. CLONAZEPAM [Concomitant]
     Dosage: OCCASIONALLY
  5. CYCLOBENZAPRINE HYDROCHLORIDE [Concomitant]

REACTIONS (1)
  - BLOOD GLUCOSE DECREASED [None]
